FAERS Safety Report 11847894 (Version 1)
Quarter: 2015Q4

REPORT INFORMATION
  Report Type: Spontaneous
  Country: FR (occurrence: FR)
  Receive Date: 20151217
  Receipt Date: 20151217
  Transmission Date: 20160305
  Serious: Yes (Hospitalization, Other)
  Sender: FDA-Public Use
  Company Number: FR-ASTRAZENECA-2015SF26181

PATIENT
  Age: 79 Year
  Sex: Female
  Weight: 66 kg

DRUGS (17)
  1. TRAMADOL. [Concomitant]
     Active Substance: TRAMADOL
     Indication: PAIN
     Dosage: TRAMADOL SR, MG BIDAILY
  2. CRESTOR [Suspect]
     Active Substance: ROSUVASTATIN CALCIUM
     Indication: HYPERCHOLESTEROLAEMIA
     Route: 048
     Dates: end: 20151113
  3. UVEDOSE [Concomitant]
     Active Substance: CHOLECALCIFEROL
  4. LEVOTHYROX [Concomitant]
     Active Substance: LEVOTHYROXINE
  5. LYRICA [Concomitant]
     Active Substance: PREGABALIN
  6. CORTANCYL [Concomitant]
     Active Substance: PREDNISONE
  7. NOVORAPID [Concomitant]
     Active Substance: INSULIN ASPART
  8. TRAMADOL. [Concomitant]
     Active Substance: TRAMADOL
     Indication: PAIN
  9. CEFTRIAXONE. [Concomitant]
     Active Substance: CEFTRIAXONE
     Indication: URINARY TRACT INFECTION
     Dates: start: 20151105
  10. PANTOPRAZOLE [Concomitant]
     Active Substance: PANTOPRAZOLE SODIUM
  11. LANTUS [Concomitant]
     Active Substance: INSULIN GLARGINE
  12. DUOPLAVIN [Concomitant]
     Active Substance: ASPIRIN\CLOPIDOGREL
  13. MOLSIDOMINE [Concomitant]
     Active Substance: MOLSIDOMINE
     Dosage: 2 MG BIDAILY
  14. ADENURIC [Concomitant]
     Active Substance: FEBUXOSTAT
  15. BISOPROLOL [Concomitant]
     Active Substance: BISOPROLOL
  16. MIMPARA [Concomitant]
     Active Substance: CINACALCET HYDROCHLORIDE
  17. RAMIPRIL. [Concomitant]
     Active Substance: RAMIPRIL

REACTIONS (2)
  - Acute kidney injury [Unknown]
  - Rhabdomyolysis [Recovering/Resolving]

NARRATIVE: CASE EVENT DATE: 20151015
